FAERS Safety Report 25396090 (Version 1)
Quarter: 2025Q2

REPORT INFORMATION
  Report Type: Spontaneous
  Country: GB (occurrence: GB)
  Receive Date: 20250604
  Receipt Date: 20250604
  Transmission Date: 20250716
  Serious: Yes (Other)
  Sender: ELI LILLY AND COMPANY
  Company Number: None

PATIENT
  Age: 46 Year
  Sex: Male
  Weight: 84 kg

DRUGS (1)
  1. MOUNJARO [Suspect]
     Active Substance: TIRZEPATIDE
     Indication: Weight control
     Dosage: UNK UNK, WEEKLY (1/W)
     Route: 065

REACTIONS (4)
  - Anxiety [Not Recovered/Not Resolved]
  - Mental disorder [Unknown]
  - Depression [Unknown]
  - Paranoia [Unknown]

NARRATIVE: CASE EVENT DATE: 20250519
